FAERS Safety Report 11878638 (Version 1)
Quarter: 2015Q4

REPORT INFORMATION
  Report Type: Spontaneous
  Country: US (occurrence: None)
  Receive Date: 20151229
  Receipt Date: 20151229
  Transmission Date: 20160305
  Serious: Yes (Hospitalization)
  Sender: FDA-Public Use
  Company Number: None

PATIENT
  Age: 57 Year
  Sex: Male
  Weight: 76.6 kg

DRUGS (2)
  1. CLONIDINE. [Suspect]
     Active Substance: CLONIDINE
     Indication: WITHDRAWAL SYNDROME
     Route: 048
     Dates: start: 20151218, end: 20151218
  2. IBUPROFEN. [Suspect]
     Active Substance: IBUPROFEN
     Indication: PAIN
     Route: 048
     Dates: start: 20151210

REACTIONS (10)
  - Blood lactic acid increased [None]
  - Electrocardiogram QT prolonged [None]
  - Withdrawal hypertension [None]
  - Hypotension [None]
  - Ventricular tachycardia [None]
  - Atrioventricular block first degree [None]
  - Drug withdrawal syndrome [None]
  - Agitation [None]
  - Intentional overdose [None]
  - Somnolence [None]

NARRATIVE: CASE EVENT DATE: 20151218
